FAERS Safety Report 4353480-4 (Version None)
Quarter: 2004Q2

REPORT INFORMATION
  Report Type: 
  Country: None (occurrence: None)
  Receive Date: 20040505
  Receipt Date: 20040505
  Transmission Date: 20050107
  Serious: Yes (Hospitalization)
  Sender: FDA-Public Use
  Company Number: None

PATIENT
  Age: 80 Year
  Sex: Male
  Weight: 94.5 kg

DRUGS (16)
  1. NAPROXEN [Suspect]
     Indication: ARTHRALGIA
     Dosage: 500MG, 250MG BI, ORAL
     Route: 048
     Dates: start: 20031101, end: 20031112
  2. NAPROXEN [Suspect]
     Indication: BACK PAIN
     Dosage: 500MG, 250MG BI, ORAL
     Route: 048
     Dates: start: 20031101, end: 20031112
  3. CLONAZEPAM [Concomitant]
  4. OXYCODONE AND ACETAMINOPHEN [Concomitant]
  5. NAPROXEN [Concomitant]
  6. HUMULIN R [Concomitant]
  7. MULTI-VITAMIN [Concomitant]
  8. FLUNISOLIDE/MENTHOL [Concomitant]
  9. ALBUTEROL [Concomitant]
  10. BISACODYL [Concomitant]
  11. VERAPAMIL HCL [Concomitant]
  12. TRAMADOL HCL [Concomitant]
  13. RABEPRAZOLE SODIUM [Concomitant]
  14. LISINOPRIL [Concomitant]
  15. BISACODYL [Concomitant]
  16. ASPIRIN [Concomitant]

REACTIONS (1)
  - RENAL FAILURE ACUTE [None]
